FAERS Safety Report 4390329-8 (Version None)
Quarter: 2004Q2

REPORT INFORMATION
  Report Type: 
  Country: None (occurrence: None)
  Receive Date: 20040630
  Receipt Date: 20040621
  Transmission Date: 20050107
  Serious: Yes (Death)
  Sender: FDA-Public Use
  Company Number: GBR-2003-0000740

PATIENT
  Age: 30 Year
  Sex: Male

DRUGS (2)
  1. OXYCONTIN [Suspect]
     Indication: ANALGESIC EFFECT
     Dosage: 40 MG, BID, ORAL
     Route: 048
  2. DICLOFENAC(DICLOFENAC) [Suspect]
     Indication: ANALGESIC EFFECT

REACTIONS (3)
  - CONVULSION [None]
  - DRUG TOXICITY [None]
  - POST PROCEDURAL COMPLICATION [None]
